FAERS Safety Report 17116906 (Version 1)
Quarter: 2019Q4

REPORT INFORMATION
  Report Type: Spontaneous
  Country: FR (occurrence: FR)
  Receive Date: 20191205
  Receipt Date: 20191205
  Transmission Date: 20200122
  Serious: Yes (Disabling)
  Sender: FDA-Public Use
  Company Number: FR-PFIZER INC-2019521665

PATIENT
  Age: 93 Year
  Sex: Female

DRUGS (2)
  1. ATORVASTATIN CALCIUM. [Suspect]
     Active Substance: ATORVASTATIN CALCIUM
     Dosage: UNK
     Dates: start: 20191109
  2. FUSIDIC ACID [Suspect]
     Active Substance: FUSIDIC ACID
     Dosage: UNK
     Route: 048
     Dates: start: 20191109, end: 20191113

REACTIONS (1)
  - Discoloured vomit [Unknown]

NARRATIVE: CASE EVENT DATE: 2019
